FAERS Safety Report 25267465 (Version 12)
Quarter: 2025Q4

REPORT INFORMATION
  Report Type: Report from Study
  Country: EU (occurrence: EU)
  Receive Date: 20250505
  Receipt Date: 20251231
  Transmission Date: 20260118
  Serious: Yes (Other)
  Sender: STEMLINE THERAPEUTICS
  Company Number: EU-STEMLINE THERAPEUTICS, INC-2025-STML-IT001562

PATIENT

DRUGS (17)
  1. ELZONRIS [Suspect]
     Active Substance: TAGRAXOFUSP-ERZS
     Indication: Blastic plasmacytoid dendritic cell neoplasia
     Dosage: 0.94 MG, CYCLIC
     Route: 042
     Dates: start: 20250408, end: 20250414
  2. ELZONRIS [Suspect]
     Active Substance: TAGRAXOFUSP-ERZS
     Dosage: 0.94 MG, CYCLIC
     Route: 042
     Dates: start: 20250411
  3. ELZONRIS [Suspect]
     Active Substance: TAGRAXOFUSP-ERZS
     Dosage: 0.94 MG, CYCLIC
     Route: 042
     Dates: start: 20250505, end: 20250509
  4. ELZONRIS [Suspect]
     Active Substance: TAGRAXOFUSP-ERZS
     Dosage: 0.94 MG, CYCLIC
     Route: 042
     Dates: start: 20250526
  5. ELZONRIS [Suspect]
     Active Substance: TAGRAXOFUSP-ERZS
     Dosage: 0.94 MG, CYCLIC (DAY 5 OF 5)
     Route: 042
     Dates: start: 20250616
  6. RASBURICASE [Concomitant]
     Active Substance: RASBURICASE
     Indication: Prophylaxis
     Dosage: 7.5 MG, DAILY
     Route: 042
     Dates: start: 20250402, end: 20250412
  7. DEXAMETHASONE [Concomitant]
     Active Substance: DEXAMETHASONE
     Indication: Cytoreductive surgery
     Dosage: 8 MG, EV, DAILY
     Route: 042
     Dates: start: 20250403, end: 20250418
  8. PANTOPRAZOLE [Concomitant]
     Active Substance: PANTOPRAZOLE
     Indication: Prophylaxis
     Dosage: 40 MG, DAILY
     Route: 048
     Dates: start: 20250404, end: 20250428
  9. ALBUMIN HUMAN [Concomitant]
     Active Substance: ALBUMIN HUMAN
     Indication: Prophylaxis
     Dosage: 10 G, BID
     Route: 042
     Dates: start: 20250407, end: 20250416
  10. BACTRIM [Concomitant]
     Active Substance: SULFAMETHOXAZOLE\TRIMETHOPRIM
     Indication: Antifungal prophylaxis
     Dosage: 1 DOSAGE FORM, (MON, WED, FRI)
     Route: 048
     Dates: start: 20250412
  11. ACYCLOVIR [Concomitant]
     Active Substance: ACYCLOVIR
     Indication: Prophylaxis
     Dosage: 400 MG, BID
     Route: 048
     Dates: start: 20250412
  12. ERYTHROPOIETIN [Concomitant]
     Active Substance: ERYTHROPOIETIN
     Indication: Anaemia
     Dosage: 4000 UI/1ML, 1 VIAL, WEEKLY (EVERY SATURDAY)
     Route: 058
     Dates: start: 20250412
  13. ERYTHROPOIETIN [Concomitant]
     Active Substance: ERYTHROPOIETIN
     Dosage: 4000 UI/1ML, 1 VIAL, WEEKLY (EVERY SATURDAY)
     Route: 058
     Dates: start: 20250512
  14. FILGRASTIM [Concomitant]
     Active Substance: FILGRASTIM
     Indication: Neutropenia
     Dosage: 1 DOSAGE FORM, DAILY
     Route: 058
     Dates: start: 20250412, end: 20250413
  15. FLUCONAZOLE [Concomitant]
     Active Substance: FLUCONAZOLE
     Indication: Antifungal prophylaxis
     Dosage: 200 MG, BID
     Route: 048
     Dates: start: 20250412, end: 20250428
  16. ALLOPURINOL [Concomitant]
     Active Substance: ALLOPURINOL
     Indication: Hyperuricaemia
     Dosage: 300 MG, DAILY
     Route: 048
     Dates: start: 20250505
  17. METRONIDAZOLE [Concomitant]
     Active Substance: METRONIDAZOLE
     Indication: Respiratory tract infection
     Dosage: 500 MG, TID
     Route: 048
     Dates: start: 20250513, end: 20250514

REACTIONS (16)
  - Platelet count decreased [Recovered/Resolved]
  - Anaemia [Recovering/Resolving]
  - Leukopenia [Recovered/Resolved]
  - Platelet count decreased [Recovered/Resolved]
  - Localised oedema [Recovered/Resolved]
  - Atrial fibrillation [Recovered/Resolved]
  - Blood fibrinogen decreased [Recovered/Resolved]
  - Platelet count decreased [Not Recovered/Not Resolved]
  - Platelet count decreased [Not Recovered/Not Resolved]
  - Back pain [Recovered/Resolved]
  - Neutrophil count decreased [Recovered/Resolved]
  - Pyrexia [Recovered/Resolved]
  - Alanine aminotransferase increased [Recovered/Resolved]
  - Weight increased [Recovered/Resolved]
  - Cough [Recovered/Resolved]
  - Febrile neutropenia [Recovered/Resolved]

NARRATIVE: CASE EVENT DATE: 20250410
